FAERS Safety Report 8396839-0 (Version None)
Quarter: 2012Q2

REPORT INFORMATION
  Report Type: 
  Country: None (occurrence: None)
  Receive Date: 20120530
  Receipt Date: 20120516
  Transmission Date: 20120825
  Serious: Yes (Hospitalization, Other)
  Sender: FDA-Public Use
  Company Number: US-PFIZER INC-2012119465

PATIENT
  Age: 19 Year
  Sex: Male
  Weight: 54.9 kg

DRUGS (8)
  1. IRINOTECAN HCL [Suspect]
     Indication: EPENDYMOMA MALIGNANT
     Dosage: 90 MG/M2, ON DAYS 1-5
     Route: 048
     Dates: start: 20120423, end: 20120424
  2. ACETAMINOPHEN AND OXYCODONE HCL [Concomitant]
  3. ZANTAC [Concomitant]
  4. TEMOZOLOMIDE [Suspect]
     Indication: EPENDYMOMA MALIGNANT
     Dosage: 125 MG/M2, ON DAYS 1-5
     Route: 048
     Dates: start: 20120423, end: 20120427
  5. SUPRAX ^KLINGE^ [Concomitant]
  6. BENADRYL [Concomitant]
  7. TORISEL [Suspect]
     Indication: EPENDYMOMA MALIGNANT
     Dosage: 35 MG/M2, OVER 30 MINUTES ON DAYS 1 + 8
     Route: 042
     Dates: start: 20120423, end: 20120423
  8. ONDANSETRON [Concomitant]

REACTIONS (4)
  - HAEMORRHAGE INTRACRANIAL [None]
  - DEHYDRATION [None]
  - HYDROCEPHALUS [None]
  - PHOTOPHOBIA [None]
